FAERS Safety Report 25298263 (Version 1)
Quarter: 2025Q2

REPORT INFORMATION
  Report Type: Spontaneous
  Country: FR (occurrence: FR)
  Receive Date: 20250512
  Receipt Date: 20250512
  Transmission Date: 20250716
  Serious: Yes (Other)
  Sender: ABBVIE
  Company Number: FR-JNJFOC-20250501365

PATIENT
  Sex: Female

DRUGS (1)
  1. IMBRUVICA [Suspect]
     Active Substance: IBRUTINIB
     Indication: Product used for unknown indication
     Route: 048

REACTIONS (12)
  - Neoplasm malignant [Unknown]
  - Fatigue [Unknown]
  - Fall [Not Recovered/Not Resolved]
  - Lymphocyte count decreased [Unknown]
  - Pain in extremity [Recovering/Resolving]
  - Influenza [Unknown]
  - Anaemia [Unknown]
  - Dyspnoea [Unknown]
  - Back pain [Recovering/Resolving]
  - Loss of consciousness [Unknown]
  - Platelet count decreased [Unknown]
  - White blood cell count increased [Unknown]

NARRATIVE: CASE EVENT DATE: 20240701
